FAERS Safety Report 20716162 (Version 2)
Quarter: 2022Q2

REPORT INFORMATION
  Report Type: Spontaneous
  Country: US (occurrence: US)
  Receive Date: 20220415
  Receipt Date: 20220429
  Transmission Date: 20220720
  Serious: Yes (Other)
  Sender: FDA-Public Use
  Company Number: US-MLMSERVICE-20220405-3482748-1

PATIENT
  Age: 49 Year
  Sex: Female

DRUGS (11)
  1. PREDNISONE [Suspect]
     Active Substance: PREDNISONE
     Indication: Immunosuppressant drug therapy
     Dosage: 5 MILLIGRAM, ONCE A DAY
     Route: 048
  2. MYCOPHENOLATE MOFETIL [Suspect]
     Active Substance: MYCOPHENOLATE MOFETIL
     Indication: Immunosuppressant drug therapy
     Dosage: 360 MILLIGRAM, TWO TIMES A DAY
     Route: 065
  3. CARVEDILOL [Concomitant]
     Active Substance: CARVEDILOL
     Indication: Hypertension
  4. HYDRALAZINE [Concomitant]
     Active Substance: HYDRALAZINE HYDROCHLORIDE
     Indication: Hypertension
     Dosage: UNK
     Route: 065
  5. LEVOTHYROXINE [Concomitant]
     Active Substance: LEVOTHYROXINE
     Indication: Thyroid disorder
     Dosage: UNK
     Route: 065
  6. TOPIRAMATE [Concomitant]
     Active Substance: TOPIRAMATE
     Indication: Idiopathic intracranial hypertension
     Dosage: UNK
     Route: 065
  7. GANCICLOVIR [Concomitant]
     Active Substance: GANCICLOVIR
     Indication: Necrotising retinitis
  8. FOSCARNET [Concomitant]
     Active Substance: FOSCARNET
     Indication: Necrotising retinitis
     Dosage: UNK
  9. PREDNISOLONE ACETATE [Concomitant]
     Active Substance: PREDNISOLONE ACETATE
     Indication: Necrotising retinitis
     Dosage: UNK, FREQUENCY OF FOUR TIMES DAILY
     Route: 047
  10. METHOTREXATE [Concomitant]
     Active Substance: METHOTREXATE
     Indication: Necrotising retinitis
     Dosage: 400 MICROGRAM
  11. GANCICLOVIR [Concomitant]
     Active Substance: GANCICLOVIR
     Indication: Necrotising retinitis
     Dosage: 450 MILLIGRAM
     Route: 048

REACTIONS (5)
  - Epstein-Barr virus infection [Recovered/Resolved]
  - Conjunctival haemorrhage [Recovered/Resolved]
  - Cystoid macular oedema [Recovered/Resolved]
  - Necrotising retinitis [Recovered/Resolved]
  - Pupillary reflex impaired [Recovered/Resolved]
